FAERS Safety Report 22300541 (Version 1)
Quarter: 2023Q2

REPORT INFORMATION
  Report Type: Spontaneous
  Country: NO (occurrence: NO)
  Receive Date: 20230509
  Receipt Date: 20230509
  Transmission Date: 20230722
  Serious: Yes (Hospitalization, Other)
  Sender: FDA-Public Use
  Company Number: NO-Accord-304369

PATIENT
  Sex: Male

DRUGS (2)
  1. GEMCITABINE [Suspect]
     Active Substance: GEMCITABINE
     Indication: Product used for unknown indication
     Dates: start: 20220110, end: 20230201
  2. PACLITAXEL [Suspect]
     Active Substance: PACLITAXEL
     Indication: Product used for unknown indication
     Dates: start: 20220110, end: 20230201

REACTIONS (5)
  - Pulmonary embolism [None]
  - Acute kidney injury [Recovering/Resolving]
  - Haemolytic uraemic syndrome [Recovering/Resolving]
  - Off label use [None]
  - Haemoglobin decreased [None]
